FAERS Safety Report 6704297-4 (Version None)
Quarter: 2010Q2

REPORT INFORMATION
  Report Type: 
  Country: None (occurrence: None)
  Receive Date: 20100430
  Receipt Date: 20100421
  Transmission Date: 20101027
  Serious: Yes (Other)
  Sender: FDA-Public Use
  Company Number: CA-JNJFOC-20091202425

PATIENT
  Sex: Female
  Weight: 102 kg

DRUGS (13)
  1. STELARA [Suspect]
     Indication: PSORIASIS
     Route: 058
     Dates: start: 20091121
  2. STELARA [Suspect]
     Route: 058
     Dates: start: 20091121
  3. ADVAIR DISKUS 100/50 [Concomitant]
     Indication: ASTHMA
     Route: 055
  4. SYNTHROID [Concomitant]
     Indication: THYROID DISORDER
     Route: 048
  5. LIPITOR [Concomitant]
     Indication: BLOOD CHOLESTEROL INCREASED
     Route: 048
  6. ASPIRIN [Concomitant]
     Indication: ANTICOAGULANT THERAPY
  7. COVERSYL [Concomitant]
     Indication: HYPERTENSION
     Route: 048
  8. INSULIN NOVORAPID [Concomitant]
  9. NPH INSULIN [Concomitant]
     Route: 058
  10. ASAPHEN [Concomitant]
     Route: 048
  11. INHALERS [Concomitant]
  12. VENTOLIN [Concomitant]
     Route: 055
  13. INSULIN TORONTO [Concomitant]
     Route: 058

REACTIONS (12)
  - ASTHMA [None]
  - BRONCHOSPASM [None]
  - CHEST DISCOMFORT [None]
  - DYSPHAGIA [None]
  - DYSPNOEA [None]
  - FACE OEDEMA [None]
  - FLUSHING [None]
  - HYPERSENSITIVITY [None]
  - PRURITUS [None]
  - RASH [None]
  - SWELLING [None]
  - URTICARIA [None]
